FAERS Safety Report 15576583 (Version 1)
Quarter: 2018Q4

REPORT INFORMATION
  Report Type: Spontaneous
  Country: US (occurrence: US)
  Receive Date: 20181101
  Receipt Date: 20181101
  Transmission Date: 20190205
  Serious: No
  Sender: FDA-Public Use
  Company Number: US-PFIZER INC-2018444884

PATIENT
  Age: 57 Year
  Sex: Female

DRUGS (1)
  1. XELJANZ [Suspect]
     Active Substance: TOFACITINIB CITRATE
     Indication: RHEUMATOID ARTHRITIS
     Dosage: 5 MG, TWICE A DAY
     Route: 048
     Dates: start: 201801

REACTIONS (5)
  - Eye pruritus [Recovered/Resolved]
  - Drug hypersensitivity [Recovered/Resolved]
  - Ear pruritus [Recovered/Resolved]
  - Eye swelling [Recovered/Resolved]
  - Respiratory tract congestion [Recovered/Resolved]
